FAERS Safety Report 6121453-7 (Version None)
Quarter: 2009Q1

REPORT INFORMATION
  Report Type: 
  Country: None (occurrence: None)
  Receive Date: 20090313
  Receipt Date: 20090313
  Transmission Date: 20090719
  Serious: Yes (Hospitalization, Other)
  Sender: FDA-Public Use
  Company Number: None

PATIENT
  Age: 39 Year
  Sex: Male
  Weight: 72.5755 kg

DRUGS (1)
  1. CHANTIX [Suspect]
     Indication: SMOKING CESSATION THERAPY
     Dosage: 1MG 1 TAB TWICE A DAY PO
     Route: 048
     Dates: start: 20090216, end: 20090306

REACTIONS (8)
  - AGGRESSION [None]
  - AGITATION [None]
  - ENURESIS [None]
  - HOSTILITY [None]
  - INTENTIONAL OVERDOSE [None]
  - MOOD SWINGS [None]
  - SELF-MEDICATION [None]
  - SUICIDE ATTEMPT [None]
